FAERS Safety Report 5932084-3 (Version None)
Quarter: 2008Q4

REPORT INFORMATION
  Report Type: 
  Country: None (occurrence: None)
  Receive Date: 20081027
  Receipt Date: 20081015
  Transmission Date: 20090506
  Serious: Yes (Death)
  Sender: FDA-Public Use
  Company Number: DE-MERCK-0810USA04167

PATIENT
  Age: 40 Year
  Sex: Male

DRUGS (5)
  1. HYDRODIURIL [Suspect]
     Indication: CARDIAC FAILURE
     Route: 048
  2. CARVEDILOL [Concomitant]
     Indication: CARDIAC FAILURE
     Route: 065
  3. RAMIPRIL [Concomitant]
     Indication: CARDIAC FAILURE
     Route: 065
  4. EPLERENONE [Concomitant]
     Indication: CARDIAC FAILURE
     Route: 065
  5. TORSEMIDE [Concomitant]
     Indication: CARDIAC FAILURE
     Route: 065

REACTIONS (3)
  - CARDIAC FAILURE ACUTE [None]
  - CONGESTIVE CARDIOMYOPATHY [None]
  - MYOCARDITIS [None]
